FAERS Safety Report 25583769 (Version 1)
Quarter: 2025Q3

REPORT INFORMATION
  Report Type: Spontaneous
  Country: US (occurrence: US)
  Receive Date: 20250721
  Receipt Date: 20250721
  Transmission Date: 20251020
  Serious: Yes (Hospitalization, Other)
  Sender: HIKMA
  Company Number: US-HIKMA PHARMACEUTICALS USA INC.-US-H14001-25-08422

PATIENT
  Age: 92 Year
  Sex: Female
  Weight: 61.31 kg

DRUGS (3)
  1. HEPARIN [Suspect]
     Active Substance: HEPARIN SODIUM
     Indication: Product used for unknown indication
     Route: 065
  2. JAKAFI [Suspect]
     Active Substance: RUXOLITINIB
     Indication: Polycythaemia vera
     Dosage: 10 MILLIGRAM, BID
     Route: 048
     Dates: start: 20250414, end: 20250607
  3. JAKAFI [Suspect]
     Active Substance: RUXOLITINIB
     Dosage: 10 MILLIGRAM, BID
     Route: 048
     Dates: start: 202504, end: 202505

REACTIONS (10)
  - Pneumothorax [Unknown]
  - Internal haemorrhage [Unknown]
  - Full blood count decreased [Unknown]
  - Oral pain [Recovered/Resolved]
  - Cough [Unknown]
  - Pulmonary oedema [Unknown]
  - Pulmonary mass [Unknown]
  - Oesophageal compression [Unknown]
  - Cardiac ventricular disorder [Unknown]
  - Oedema peripheral [Unknown]

NARRATIVE: CASE EVENT DATE: 20250506
